FAERS Safety Report 18935612 (Version 1)
Quarter: 2021Q1

REPORT INFORMATION
  Report Type: Spontaneous
  Country: IE (occurrence: IE)
  Receive Date: 20210224
  Receipt Date: 20210224
  Transmission Date: 20210420
  Serious: Yes (Other)
  Sender: FDA-Public Use
  Company Number: IE-TEVA-2021-IE-1885364

PATIENT
  Age: 15 Year
  Sex: Male

DRUGS (2)
  1. SODIUM OXYBATE. [Concomitant]
     Active Substance: SODIUM OXYBATE
     Route: 065
  2. MODAFINIL. [Suspect]
     Active Substance: MODAFINIL
     Route: 065

REACTIONS (1)
  - Acute psychosis [Unknown]
